FAERS Safety Report 15341064 (Version 1)
Quarter: 2018Q3

REPORT INFORMATION
  Report Type: Spontaneous
  Country: US (occurrence: US)
  Receive Date: 20180831
  Receipt Date: 20180831
  Transmission Date: 20181010
  Serious: Yes (Other)
  Sender: FDA-Public Use
  Company Number: US-MYLANLABS-2018M1062800

PATIENT
  Sex: Female
  Weight: 93 kg

DRUGS (2)
  1. GABAPENTIN. [Suspect]
     Active Substance: GABAPENTIN
     Indication: PAIN
  2. GABAPENTIN. [Suspect]
     Active Substance: GABAPENTIN
     Indication: NEURALGIA
     Dosage: UNK

REACTIONS (5)
  - Multiple sclerosis [Unknown]
  - Asthenia [Unknown]
  - Feeling hot [Unknown]
  - Hot flush [Unknown]
  - Vision blurred [Recovered/Resolved]
